FAERS Safety Report 24176371 (Version 6)
Quarter: 2024Q3

REPORT INFORMATION
  Report Type: Spontaneous
  Country: ZA (occurrence: ZA)
  Receive Date: 20240806
  Receipt Date: 20240926
  Transmission Date: 20241017
  Serious: Yes (Hospitalization, Other)
  Sender: CELLTRION
  Company Number: ZA-ADCOCK INGRAM-2024ZA017806

PATIENT

DRUGS (5)
  1. INFLIXIMAB [Suspect]
     Active Substance: INFLIXIMAB
     Indication: Crohn^s disease
     Dosage: FIRST INFUSION YESTERDAY; 300MG INTRAVENOUS INFUSION AT 0 WEEKS=16 JUL 2024; LOADING START DOSE
     Route: 042
     Dates: start: 20240716
  2. ACETAMINOPHEN [Concomitant]
     Active Substance: ACETAMINOPHEN
     Dosage: HE HAD TWO PANADO^S WITH THE START OF THE INFUSION.
  3. PREDNISONE [Concomitant]
     Active Substance: PREDNISONE
     Dosage: 9 PILLS AND TAPERING OF EACH WEEK BY ONE PILL
  4. PREDNISONE [Concomitant]
     Active Substance: PREDNISONE
     Dosage: TAPERING OF TOMORROW AT 4 PILLS A DAY (STARTED ON 12 - 5MG PILLS A DAY/WEEK)
  5. METHOTREXATE [Concomitant]
     Active Substance: METHOTREXATE
     Dosage: NOT FORMING ANTIBODIES AGAINST REMSIMA

REACTIONS (10)
  - Crohn^s disease [Unknown]
  - Clostridium difficile infection [Recovering/Resolving]
  - Influenza [Recovered/Resolved]
  - Rash pustular [Unknown]
  - Hot flush [Recovered/Resolved with Sequelae]
  - Night sweats [Recovered/Resolved with Sequelae]
  - Fatigue [Recovered/Resolved]
  - Weight decreased [Recovering/Resolving]
  - Intentional product use issue [Unknown]
  - Underdose [Unknown]

NARRATIVE: CASE EVENT DATE: 20240716
